FAERS Safety Report 19977408 (Version 1)
Quarter: 2021Q4

REPORT INFORMATION
  Report Type: Spontaneous
  Country: US (occurrence: US)
  Receive Date: 20211021
  Receipt Date: 20211021
  Transmission Date: 20220303
  Serious: Yes (Hospitalization)
  Sender: FDA-Public Use
  Company Number: US-SUN PHARMACEUTICAL INDUSTRIES LTD-2021R1-314294

PATIENT
  Age: 73 Year
  Sex: Female

DRUGS (6)
  1. HYDROXYZINE [Suspect]
     Active Substance: HYDROXYZINE HYDROCHLORIDE
     Indication: Pruritus
     Dosage: 25 MILLIGRAM, QID
     Route: 065
  2. PREDNISONE [Suspect]
     Active Substance: PREDNISONE
     Indication: Lichen planus
     Dosage: 20 MILLIGRAM, DAILY
     Route: 048
  3. PREDNISONE [Suspect]
     Active Substance: PREDNISONE
     Indication: Pemphigoid
     Dosage: 40 MILLIGRAM, DAILY
     Route: 048
  4. PREDNISONE [Suspect]
     Active Substance: PREDNISONE
     Dosage: 1 MILLIGRAM/KILOGRAM, DAILY
     Route: 048
  5. CLOBETASOL [Suspect]
     Active Substance: CLOBETASOL
     Indication: Pemphigoid
     Dosage: UNK
     Route: 061
  6. SOLU-MEDROL [Concomitant]
     Active Substance: METHYLPREDNISOLONE SODIUM SUCCINATE
     Indication: Pemphigoid
     Dosage: 1 GRAM, DAILY
     Route: 042

REACTIONS (1)
  - Disease recurrence [Unknown]
